FAERS Safety Report 6913869-3 (Version None)
Quarter: 2010Q3

REPORT INFORMATION
  Report Type: 
  Country: None (occurrence: None)
  Receive Date: 20100809
  Receipt Date: 20100804
  Transmission Date: 20110219
  Serious: Yes (Life-Threatening, Other)
  Sender: FDA-Public Use
  Company Number: JP-BAYER-201013989BYL

PATIENT
  Age: 75 Year
  Sex: Male
  Weight: 60 kg

DRUGS (2)
  1. NEXAVAR [Suspect]
     Indication: HEPATIC NEOPLASM MALIGNANT
     Dosage: UNIT DOSE: 200 MG
     Route: 048
     Dates: start: 20100627, end: 20100712
  2. NEXAVAR [Suspect]
     Dosage: UNIT DOSE: 200 MG
     Route: 048
     Dates: start: 20100721, end: 20100804

REACTIONS (2)
  - HEPATIC FUNCTION ABNORMAL [None]
  - UPPER GASTROINTESTINAL HAEMORRHAGE [None]
